FAERS Safety Report 6960742-0 (Version None)
Quarter: 2010Q3

REPORT INFORMATION
  Report Type: 
  Country: None (occurrence: None)
  Receive Date: 20100901
  Receipt Date: 20100823
  Transmission Date: 20110219
  Serious: Yes (Hospitalization)
  Sender: FDA-Public Use
  Company Number: JP-PFIZER INC-2010108802

PATIENT
  Age: 65 Year
  Sex: Male

DRUGS (4)
  1. CELECOX [Suspect]
     Dosage: 200 MG, DAILY
     Route: 048
     Dates: start: 20100610, end: 20100619
  2. GASTER [Concomitant]
     Dosage: 20 MG, UNK
     Dates: start: 20100610, end: 20100619
  3. NEUROTROPIN [Concomitant]
     Dosage: UNK
     Dates: start: 20100610, end: 20100619
  4. KETOPROFEN [Concomitant]
     Dosage: UNK
     Dates: start: 20100610, end: 20100619

REACTIONS (1)
  - GENERALISED ERYTHEMA [None]
